FAERS Safety Report 9168562 (Version 1)
Quarter: 2013Q1

REPORT INFORMATION
  Report Type: Report from Study
  Country: CA (occurrence: CA)
  Receive Date: 20130318
  Receipt Date: 20130318
  Transmission Date: 20140127
  Serious: Yes (Other)
  Sender: FDA-Public Use
  Company Number: CA-ABBOTT-12P-028-0950585-00

PATIENT
  Sex: Female
  Weight: 90.8 kg

DRUGS (8)
  1. HUMIRA [Suspect]
     Indication: CROHN^S DISEASE
     Route: 058
     Dates: start: 20101111, end: 2012
  2. HUMIRA [Suspect]
     Route: 058
     Dates: start: 201210, end: 201301
  3. HUMIRA [Suspect]
     Route: 058
     Dates: start: 201301
  4. COVERSYL PLUS HD [Concomitant]
     Indication: HYPERTENSION
     Route: 048
     Dates: start: 2010
  5. SANDOZ-RABEPRAZOLE [Concomitant]
     Indication: DYSPEPSIA
     Route: 048
     Dates: start: 2010
  6. VITAMIN B12 [Concomitant]
     Indication: VITAMIN B12 DEFICIENCY
     Route: 048
     Dates: start: 2010
  7. VITAMIN D [Concomitant]
     Indication: SUPPLEMENTATION THERAPY
     Route: 048
     Dates: start: 2010
  8. PREDNISONE [Concomitant]
     Indication: PRODUCT USED FOR UNKNOWN INDICATION

REACTIONS (1)
  - Large intestinal stenosis [Not Recovered/Not Resolved]
